FAERS Safety Report 7989013-0 (Version None)
Quarter: 2011Q4

REPORT INFORMATION
  Report Type: 
  Country: None (occurrence: None)
  Receive Date: 20111219
  Receipt Date: 20111208
  Transmission Date: 20120403
  Serious: Yes (Hospitalization, Other)
  Sender: FDA-Public Use
  Company Number: JP-GENZYME-THYM-1002238

PATIENT
  Sex: Male
  Weight: 61 kg

DRUGS (14)
  1. THYMOGLOBULIN [Suspect]
     Dosage: 119.1 MG, QD
     Route: 042
     Dates: start: 20100202, end: 20100202
  2. CYTARABINE [Concomitant]
     Indication: BONE MARROW CONDITIONING REGIMEN
     Dosage: UNK
     Dates: start: 20100129, end: 20100130
  3. CYCLOPHOSPHAMIDE [Concomitant]
     Indication: PROPHYLAXIS AGAINST GRAFT VERSUS HOST DISEASE
     Dosage: UNK
     Dates: start: 20100212, end: 20100212
  4. LEVOFLOXACIN [Concomitant]
     Indication: PREMEDICATION
     Dosage: UNK
     Dates: start: 20100125, end: 20100128
  5. CIPROFLOXACIN HYDROCHLORIDE [Concomitant]
     Indication: PREMEDICATION
     Dosage: UNK
     Dates: start: 20100129, end: 20100201
  6. BACTRIM [Concomitant]
     Indication: PREMEDICATION
     Dosage: UNK
     Dates: start: 20100125, end: 20100201
  7. HYDROCORTISONE SODIUM SUCCINATE [Concomitant]
     Indication: PROPHYLAXIS AGAINST GRAFT VERSUS HOST DISEASE
     Dosage: UNK
     Dates: start: 20100129, end: 20100130
  8. THYMOGLOBULIN [Suspect]
     Dosage: UNK
     Dates: start: 20100826, end: 20100827
  9. TACROLIMUS [Concomitant]
     Indication: PROPHYLAXIS AGAINST GRAFT VERSUS HOST DISEASE
     Dosage: UNK
     Dates: start: 20100203, end: 20100206
  10. THYMOGLOBULIN [Suspect]
     Indication: BONE MARROW CONDITIONING REGIMEN
     Dosage: 119.0 MG, QD
     Route: 042
     Dates: start: 20100201, end: 20100201
  11. ITRACONAZOLE [Concomitant]
     Indication: PREMEDICATION
     Dosage: UNK
     Dates: start: 20100125, end: 20100128
  12. FLUDARABINE PHOSPHATE [Concomitant]
     Indication: BONE MARROW CONDITIONING REGIMEN
     Dosage: UNK
     Dates: start: 20100129, end: 20100130
  13. METHYLPREDNISOLONE SODIUM SUCCINATE [Concomitant]
     Indication: PROPHYLAXIS AGAINST GRAFT VERSUS HOST DISEASE
     Dosage: UNK
     Dates: start: 20100201, end: 20100201
  14. ACYCLOVIR [Concomitant]
     Indication: PREMEDICATION
     Dosage: UNK
     Dates: start: 20100129, end: 20100222

REACTIONS (6)
  - BRONCHOPULMONARY ASPERGILLOSIS [None]
  - ACUTE GRAFT VERSUS HOST DISEASE IN SKIN [None]
  - FEBRILE NEUTROPENIA [None]
  - STAPHYLOCOCCAL SEPSIS [None]
  - ACUTE GRAFT VERSUS HOST DISEASE IN LIVER [None]
  - ACUTE MYELOID LEUKAEMIA RECURRENT [None]
